FAERS Safety Report 9184358 (Version 1)
Quarter: 2013Q1

REPORT INFORMATION
  Report Type: Spontaneous
  Country: CN (occurrence: CN)
  Receive Date: 20130322
  Receipt Date: 20130322
  Transmission Date: 20140127
  Serious: Yes (Other)
  Sender: FDA-Public Use
  Company Number: CN-ABBOTT-13X-035-1066600-00

PATIENT
  Age: 27 Year
  Sex: Male

DRUGS (1)
  1. DEPAKINE CHRONO [Suspect]
     Indication: EPILEPSY
     Dosage: 500 MILLIGRAM(S), DAILY
     Route: 048
     Dates: start: 2010

REACTIONS (7)
  - Foaming at mouth [Unknown]
  - Epilepsy [Recovered/Resolved]
  - Trismus [Unknown]
  - Tongue biting [Unknown]
  - Muscle twitching [Unknown]
  - Loss of consciousness [Unknown]
  - Alopecia [Not Recovered/Not Resolved]
